FAERS Safety Report 10049616 (Version 1)
Quarter: 2014Q1

REPORT INFORMATION
  Report Type: Spontaneous
  Country: US (occurrence: None)
  Receive Date: 20140331
  Receipt Date: 20140331
  Transmission Date: 20141002
  Serious: Yes (Life-Threatening)
  Sender: FDA-Public Use
  Company Number: None

PATIENT
  Age: 61 Year
  Sex: Female
  Weight: 62.14 kg

DRUGS (19)
  1. JANUVIA 100 MG [Suspect]
     Indication: TYPE 2 DIABETES MELLITUS
     Route: 048
     Dates: start: 20130903, end: 20140214
  2. ARTIFICIAL TEARS EYE DROPS [Concomitant]
  3. ENTERIC COATED TABLET [Concomitant]
  4. ATORVASTATIN [Concomitant]
  5. CITALOPRAM [Concomitant]
  6. CYCLOBENZAPRINE [Concomitant]
  7. DOCUSATE SODIUM [Concomitant]
  8. IBUPROFEN [Concomitant]
  9. LANTUS 100 UNITS/ML SOLOSTAR [Concomitant]
  10. METFORMIN 750MG EXTENDED RELEASE TABLET [Concomitant]
  11. MINERIN CREME [Concomitant]
  12. OXYBUTYNIN XL [Concomitant]
  13. PEN NEEDLE [Concomitant]
  14. PRECISION XTRA TEST STRIP [Concomitant]
  15. PREMARIN [Concomitant]
  16. RANITIDINE [Concomitant]
  17. THERA-M HP VITAMINS AND MINERALS TABLET [Concomitant]
  18. TRAMADOL HCL [Concomitant]
  19. VITAMIN B-12 [Concomitant]

REACTIONS (2)
  - Pancreatitis acute [None]
  - Pancreatic carcinoma [None]
